FAERS Safety Report 6979567-5 (Version None)
Quarter: 2010Q3

REPORT INFORMATION
  Report Type: 
  Country: None (occurrence: None)
  Receive Date: 20100910
  Receipt Date: 20100910
  Transmission Date: 20110219
  Serious: No
  Sender: FDA-Public Use
  Company Number: None

PATIENT
  Age: 62 Year
  Sex: Male
  Weight: 78 kg

DRUGS (5)
  1. PRISTIQ [Suspect]
     Indication: DEPRESSION
     Dates: end: 20100528
  2. PRISTIQ [Suspect]
     Indication: HYPERLIPIDAEMIA
     Dates: end: 20100528
  3. SIMVASTATIN [Suspect]
     Dosage: 40 MG AT BEDTIME PO
     Route: 048
     Dates: start: 20090810, end: 20100528
  4. VERAPAMIL [Suspect]
  5. TOPAMAX [Suspect]

REACTIONS (6)
  - BLOOD PRESSURE DECREASED [None]
  - DIZZINESS [None]
  - GAIT DISTURBANCE [None]
  - LIVER FUNCTION TEST ABNORMAL [None]
  - PARALYSIS [None]
  - RHABDOMYOLYSIS [None]
